FAERS Safety Report 8587475 (Version 2)
Quarter: 2012Q4

REPORT INFORMATION
  Report Type: 
  Country: US (occurrence: US)
  Receive Date: 20120531
  Receipt Date: 20121024
  Transmission Date: 20130627
  Serious: Yes (Hospitalization)
  Sender: FDA-Public Use
  Company Number: US-BAYER-2012-052708

PATIENT
  Age: 25 Year
  Sex: Female
  Weight: 61.22 kg

DRUGS (5)
  1. YAZ [Suspect]
     Indication: CONTRACEPTION
     Dosage: UNK
     Dates: start: 200803, end: 20100607
  2. YAZ [Suspect]
     Indication: PREMENSTRUAL SYNDROME
  3. WELLBUTRIN [Concomitant]
     Indication: DEPRESSION
     Dosage: 300 mg, UNK
     Route: 048
  4. XANAX [Concomitant]
     Indication: ANXIETY
     Dosage: 0.5 mg, UNK
     Route: 048
  5. TRI-SPRINTEC-28 [Concomitant]

REACTIONS (9)
  - Gallbladder injury [None]
  - Cholecystitis chronic [None]
  - Pain [None]
  - Injury [None]
  - General physical health deterioration [None]
  - Anxiety [None]
  - Emotional distress [None]
  - Anhedonia [None]
  - Pain [None]
